FAERS Safety Report 15008981 (Version 2)
Quarter: 2018Q3

REPORT INFORMATION
  Report Type: Spontaneous
  Country: AU (occurrence: AU)
  Receive Date: 20180614
  Receipt Date: 20180725
  Transmission Date: 20181010
  Serious: Yes (Other)
  Sender: FDA-Public Use
  Company Number: AU-BIOGEN-2018BI00594693

PATIENT
  Sex: Female

DRUGS (1)
  1. TYSABRI [Suspect]
     Active Substance: NATALIZUMAB
     Indication: MULTIPLE SCLEROSIS
     Dosage: INFUSED OVER AN HOUR
     Route: 042

REACTIONS (1)
  - Myelitis [Unknown]
